APPROVED DRUG PRODUCT: LITHIUM CARBONATE
Active Ingredient: LITHIUM CARBONATE
Strength: 300MG
Dosage Form/Route: CAPSULE;ORAL
Application: A076823 | Product #002
Applicant: ABLE LABORATORIES INC
Approved: Jun 29, 2004 | RLD: No | RS: No | Type: DISCN